FAERS Safety Report 16157885 (Version 2)
Quarter: 2019Q2

REPORT INFORMATION
  Report Type: Report from Study
  Country: JP (occurrence: JP)
  Receive Date: 20190404
  Receipt Date: 20190410
  Transmission Date: 20190711
  Serious: Yes (Hospitalization)
  Sender: FDA-Public Use
  Company Number: JP-NEUROCRINE BIOSCIENCES INC.-2019NBI00809

PATIENT
  Age: 54 Year
  Sex: Female
  Weight: 45 kg

DRUGS (9)
  1. RIVOTRIL [Concomitant]
     Active Substance: CLONAZEPAM
     Dates: start: 20090513, end: 20190322
  2. LIMAS [Concomitant]
     Active Substance: LITHIUM CARBONATE
     Dates: start: 20090603, end: 20190322
  3. AKINETON [Concomitant]
     Active Substance: BIPERIDEN HYDROCHLORIDE
     Dates: start: 20071116, end: 20190322
  4. DORAL [Concomitant]
     Active Substance: QUAZEPAM
     Dates: start: 20090701, end: 20190322
  5. MT-5199 (VALBENAZINE) [Suspect]
     Active Substance: VALBENAZINE
     Indication: TARDIVE DYSKINESIA
     Route: 048
     Dates: start: 20180920, end: 20190322
  6. ZYPREXA [Concomitant]
     Active Substance: OLANZAPINE
     Dates: start: 20140325, end: 20190322
  7. MAGLAX [Concomitant]
     Active Substance: MAGNESIUM OXIDE
     Dates: start: 20181126, end: 20190322
  8. ROHYPNOL [Concomitant]
     Active Substance: FLUNITRAZEPAM
     Dates: start: 20080307, end: 20190322
  9. DEPAKENE [Concomitant]
     Active Substance: VALPROIC ACID
     Dates: start: 20151117, end: 20190322

REACTIONS (1)
  - Suicide attempt [Not Recovered/Not Resolved]

NARRATIVE: CASE EVENT DATE: 20190322
